FAERS Safety Report 10745889 (Version 1)
Quarter: 2015Q1

REPORT INFORMATION
  Report Type: Spontaneous
  Country: JP (occurrence: JP)
  Receive Date: 20150128
  Receipt Date: 20150128
  Transmission Date: 20150721
  Serious: Yes (Hospitalization)
  Sender: FDA-Public Use
  Company Number: JP-BAYER-2013-141570

PATIENT
  Age: 56 Year
  Sex: Male
  Weight: 62 kg

DRUGS (9)
  1. PLAVIX [Concomitant]
     Active Substance: CLOPIDOGREL BISULFATE
     Indication: MYOCARDIAL ISCHAEMIA
     Dosage: DAILY DOSE 75 MG
     Route: 048
     Dates: start: 20120922, end: 20121031
  2. FOSRENOL [Suspect]
     Active Substance: LANTHANUM CARBONATE
     Indication: HYPERPHOSPHATAEMIA
     Dosage: DAILY DOSE 1500 MG
     Route: 048
     Dates: start: 20130221, end: 20130320
  3. FOSRENOL [Suspect]
     Active Substance: LANTHANUM CARBONATE
     Indication: HYPERPHOSPHATAEMIA
     Dosage: DAILY DOSE 1500 MG
     Route: 048
     Dates: start: 20120628, end: 20121105
  4. FOSRENOL [Suspect]
     Active Substance: LANTHANUM CARBONATE
     Indication: HYPERPHOSPHATAEMIA
     Dosage: DAILY DOSE 2250 MG
     Route: 048
     Dates: start: 20130321, end: 20131002
  5. FOSRENOL [Suspect]
     Active Substance: LANTHANUM CARBONATE
     Indication: HYPERPHOSPHATAEMIA
     Dosage: DAILY DOSE 1500 MG
     Route: 048
     Dates: start: 20131003
  6. FOSRENOL [Suspect]
     Active Substance: LANTHANUM CARBONATE
     Indication: HYPERPHOSPHATAEMIA
     Dosage: DAILY DOSE 750 MG
     Route: 048
     Dates: start: 20090716, end: 20091216
  7. BAYASPIRIN [Suspect]
     Active Substance: ASPIRIN
     Indication: MYOCARDIAL ISCHAEMIA
     Dosage: 1 MG, QD
     Route: 048
     Dates: start: 20120922
  8. FOSRENOL [Suspect]
     Active Substance: LANTHANUM CARBONATE
     Indication: HYPERPHOSPHATAEMIA
     Dosage: DAILY DOSE 1500 MG
     Route: 048
     Dates: start: 20091217, end: 20120627
  9. FOSRENOL [Suspect]
     Active Substance: LANTHANUM CARBONATE
     Indication: HYPERPHOSPHATAEMIA
     Dosage: DAILY DOSE 1000 MG
     Route: 048
     Dates: start: 20121106, end: 20130220

REACTIONS (3)
  - Myocardial ischaemia [Recovering/Resolving]
  - Small intestinal haemorrhage [Recovering/Resolving]
  - Myocardial ischaemia [Recovering/Resolving]

NARRATIVE: CASE EVENT DATE: 20120928
